FAERS Safety Report 7711395-5 (Version None)
Quarter: 2011Q3

REPORT INFORMATION
  Report Type: 
  Country: None (occurrence: None)
  Receive Date: 20110826
  Receipt Date: 20110815
  Transmission Date: 20111222
  Serious: No
  Sender: FDA-Public Use
  Company Number: US-B.I. PHARMACEUTICALS,INC./RIDGEFIELD-2011-BP-19966BP

PATIENT
  Age: 86 Year
  Sex: Male

DRUGS (3)
  1. WARFARIN SODIUM [Concomitant]
     Indication: ATRIAL FIBRILLATION
  2. MICARDIS [Suspect]
     Dosage: 40 MG
     Route: 048
     Dates: start: 20100101
  3. MICARDIS [Suspect]
     Indication: EJECTION FRACTION ABNORMAL
     Dosage: 40 MG
     Route: 048
     Dates: start: 20100101, end: 20100101

REACTIONS (1)
  - EJECTION FRACTION DECREASED [None]
